FAERS Safety Report 9384403 (Version 3)
Quarter: 2014Q1

REPORT INFORMATION
  Report Type: Report from Study
  Country: AU (occurrence: AU)
  Receive Date: 20130705
  Receipt Date: 20140120
  Transmission Date: 20141002
  Serious: Yes (Death, Hospitalization)
  Sender: FDA-Public Use
  Company Number: PHHY2013AU070618

PATIENT
  Age: 87 Year
  Sex: Male

DRUGS (4)
  1. SANDOSTATIN LAR [Suspect]
     Indication: CARCINOID SYNDROME
     Dosage: 20 MG
     Route: 030
  2. AMLODIPINE [Concomitant]
     Dosage: UNK UKN, UNK
     Route: 048
  3. TRANSDERM//HYOSCINE [Concomitant]
     Dosage: UNK UKN, UNK
     Route: 048
  4. METOPROLOL [Concomitant]
     Dosage: UNK UKN, UNK
     Route: 048

REACTIONS (2)
  - Cerebral haemorrhage [Fatal]
  - Loss of consciousness [Fatal]
